FAERS Safety Report 6098734-9 (Version None)
Quarter: 2009Q1

REPORT INFORMATION
  Report Type: 
  Country: None (occurrence: None)
  Receive Date: 20090302
  Receipt Date: 20090224
  Transmission Date: 20090719
  Serious: Yes (Life-Threatening, Hospitalization, Other)
  Sender: FDA-Public Use
  Company Number: TW-ASTRAZENECA-2009AP01454

PATIENT
  Age: 40 Year
  Sex: Female

DRUGS (2)
  1. MARCAINE [Suspect]
     Indication: CAESAREAN SECTION
     Dosage: 6CC STAT
     Route: 037
     Dates: start: 20090208, end: 20090208
  2. LIDOCAINE [Concomitant]
     Dates: start: 20090207

REACTIONS (1)
  - ANAPHYLACTIC SHOCK [None]
